FAERS Safety Report 6568851-5 (Version None)
Quarter: 2010Q1

REPORT INFORMATION
  Report Type: 
  Country: None (occurrence: None)
  Receive Date: 20100203
  Receipt Date: 20090603
  Transmission Date: 20100710
  Serious: No
  Sender: FDA-Public Use
  Company Number: US-ABBOTT-09P-163-0578272-00

PATIENT
  Sex: Female
  Weight: 77.18 kg

DRUGS (7)
  1. TRICOR [Suspect]
     Indication: BLOOD CHOLESTEROL INCREASED
     Dates: start: 20090101
  2. NEURONTIN [Concomitant]
     Indication: FIBROMYALGIA
  3. HYDROCHLOROTHIAZIDE [Concomitant]
     Indication: HYPERTENSION
  4. LIPITOR [Concomitant]
     Indication: BLOOD CHOLESTEROL INCREASED
  5. ZETIA [Concomitant]
     Indication: BLOOD CHOLESTEROL INCREASED
  6. ASPIRIN [Concomitant]
     Indication: PROPHYLAXIS
  7. ASPIRIN [Concomitant]
     Indication: CARDIAC DISORDER

REACTIONS (1)
  - BLOOD CHOLESTEROL INCREASED [None]
